FAERS Safety Report 12009740 (Version 1)
Quarter: 2016Q1

REPORT INFORMATION
  Report Type: Spontaneous
  Country: US (occurrence: None)
  Receive Date: 20160204
  Receipt Date: 20160204
  Transmission Date: 20160526
  Serious: Yes (Hospitalization)
  Sender: FDA-Public Use
  Company Number: None

PATIENT
  Age: 80 Year
  Sex: Male
  Weight: 68.04 kg

DRUGS (3)
  1. COREG [Concomitant]
     Active Substance: CARVEDILOL
  2. ZOLOFT [Suspect]
     Active Substance: SERTRALINE HYDROCHLORIDE
     Dates: start: 20151125, end: 20151128
  3. ATIVAN [Suspect]
     Active Substance: LORAZEPAM

REACTIONS (12)
  - Dizziness [None]
  - Poor quality sleep [None]
  - Asthenia [None]
  - Dehydration [None]
  - Renal failure [None]
  - Rash [None]
  - Diarrhoea [None]
  - Vomiting [None]
  - Somnolence [None]
  - Anxiety [None]
  - Nausea [None]
  - Onychoclasis [None]

NARRATIVE: CASE EVENT DATE: 20151125
